FAERS Safety Report 10004994 (Version 2)
Quarter: 2014Q1

REPORT INFORMATION
  Report Type: Spontaneous
  Country: SE (occurrence: SE)
  Receive Date: 20140312
  Receipt Date: 20140326
  Transmission Date: 20141002
  Serious: Yes (Hospitalization)
  Sender: FDA-Public Use
  Company Number: PHHY2014SE028712

PATIENT
  Age: 47 Year
  Sex: Male

DRUGS (5)
  1. GILENYA [Suspect]
     Indication: MULTIPLE SCLEROSIS
     Dosage: 0.5 MG, QD
     Route: 048
     Dates: start: 20140303, end: 20140303
  2. OXYNORM [Concomitant]
     Indication: PAIN
     Dosage: 10 MG, PRN
     Route: 048
  3. GABAPENTIN [Concomitant]
     Indication: PAIN
     Dosage: 300 MG, UNK
     Route: 048
  4. SAROTEN [Concomitant]
     Indication: PAIN
     Dosage: 10 MG, UNK
     Route: 048
     Dates: end: 20140301
  5. ANTIDEPRESSANTS [Concomitant]

REACTIONS (3)
  - Heart rate irregular [Recovered/Resolved]
  - Atrioventricular block second degree [Recovered/Resolved]
  - Dyspnoea [Unknown]
